FAERS Safety Report 19061783 (Version 1)
Quarter: 2021Q1

REPORT INFORMATION
  Report Type: Spontaneous
  Country: US (occurrence: US)
  Receive Date: 20210325
  Receipt Date: 20210325
  Transmission Date: 20210420
  Serious: Yes (Death)
  Sender: FDA-Public Use
  Company Number: None

PATIENT
  Age: 78 Year
  Sex: Female

DRUGS (11)
  1. HYDROCHLOROTHIAZIDE 25MG [Concomitant]
     Active Substance: HYDROCHLOROTHIAZIDE
  2. METOPROLOL TARTRATE 100MG [Concomitant]
     Active Substance: METOPROLOL TARTRATE
  3. REPATHA [Suspect]
     Active Substance: EVOLOCUMAB
     Indication: HYPERLIPIDAEMIA
     Dosage: ?          OTHER FREQUENCY:EVERY 14 DAYS;?
     Route: 058
     Dates: start: 20200615, end: 20210303
  4. REPATHA [Suspect]
     Active Substance: EVOLOCUMAB
     Indication: CORONARY ARTERY DISEASE
     Dosage: ?          OTHER FREQUENCY:EVERY 14 DAYS;?
     Route: 058
     Dates: start: 20200615, end: 20210303
  5. ADVAIR DISKUS 250/50MCG [Concomitant]
  6. LOSARTAN 100MG [Concomitant]
     Active Substance: LOSARTAN
  7. OMEPRAZOLE 40MG [Concomitant]
     Active Substance: OMEPRAZOLE
  8. CYANOCOBALAMIN 1000MCG/ML [Concomitant]
  9. ROSUVASTATIN 40MG [Concomitant]
     Active Substance: ROSUVASTATIN
  10. AMLODIPINE [Concomitant]
     Active Substance: AMLODIPINE BESYLATE
  11. EZETIMIBE 10MG [Concomitant]
     Active Substance: EZETIMIBE

REACTIONS (2)
  - Heart valve incompetence [None]
  - Hospice care [None]

NARRATIVE: CASE EVENT DATE: 20210324
